FAERS Safety Report 9492013 (Version 1)
Quarter: 2013Q3

REPORT INFORMATION
  Report Type: Spontaneous
  Country: IT (occurrence: None)
  Receive Date: 20130827
  Receipt Date: 20130827
  Transmission Date: 20140515
  Serious: Yes (Other)
  Sender: FDA-Public Use
  Company Number: B0917421A

PATIENT
  Sex: 0

DRUGS (4)
  1. LAMIVUDINE-HIV [Suspect]
     Indication: ANTIVIRAL PROPHYLAXIS
     Route: 064
  2. NEVIRAPINE [Suspect]
     Indication: ANTIVIRAL PROPHYLAXIS
     Route: 064
  3. NEVIRAPINE [Suspect]
     Indication: ANTIVIRAL PROPHYLAXIS
     Route: 048
  4. ZIDOVUDINE [Suspect]
     Indication: ANTIVIRAL PROPHYLAXIS
     Route: 064

REACTIONS (3)
  - HIV infection [None]
  - Exposure during pregnancy [None]
  - Exposure during breast feeding [None]
